FAERS Safety Report 8779819 (Version 2)
Quarter: 2013Q3

REPORT INFORMATION
  Report Type: Spontaneous
  Country: US (occurrence: US)
  Receive Date: 20120912
  Receipt Date: 20130820
  Transmission Date: 20140515
  Serious: Yes (Other)
  Sender: FDA-Public Use
  Company Number: US-UCBSA-065048

PATIENT
  Age: 32 Year
  Sex: Female

DRUGS (1)
  1. CIMZIA [Suspect]
     Indication: CROHN^S DISEASE
     Dosage: AT THE RIGHT ABDOMEN SITE
     Route: 058
     Dates: start: 20081208

REACTIONS (2)
  - Clostridium difficile colitis [Not Recovered/Not Resolved]
  - Sinusitis [Not Recovered/Not Resolved]
